FAERS Safety Report 8193721 (Version 2)
Quarter: 2013Q3

REPORT INFORMATION
  Report Type: Report from Study
  Country: AR (occurrence: AR)
  Receive Date: 20111021
  Receipt Date: 20130807
  Transmission Date: 20140515
  Serious: Yes (Other)
  Sender: FDA-Public Use
  Company Number: AR-ROCHE-1005193

PATIENT
  Sex: Male

DRUGS (2)
  1. RANIBIZUMAB [Suspect]
     Indication: CORNEAL DISORDER
     Dosage: SINCE THREE MONTHS
     Route: 050
     Dates: start: 2011
  2. INSULIN [Concomitant]

REACTIONS (4)
  - Convulsion [Recovered/Resolved]
  - Blood glucose decreased [Recovered/Resolved]
  - Cardiac disorder [Unknown]
  - Cerebrovascular accident [Unknown]
